FAERS Safety Report 9424313 (Version 1)
Quarter: 2013Q3

REPORT INFORMATION
  Report Type: Spontaneous
  Country: US (occurrence: None)
  Receive Date: 20130726
  Receipt Date: 20130726
  Transmission Date: 20140515
  Serious: No
  Sender: FDA-Public Use
  Company Number: None

PATIENT
  Age: 18 Day
  Sex: Male
  Weight: 93.44 kg

DRUGS (5)
  1. CYCLOPHOSPHAMIDE [Suspect]
     Dates: start: 20130427, end: 20130621
  2. DOXORUBICIN HYDROCHLORIDE [Suspect]
     Dates: end: 20130622
  3. ETOPOSIDE [Suspect]
     Dates: end: 20130712
  4. IFOSFAMIDE [Suspect]
     Dates: end: 20130712
  5. VINCRISTINE SULFATE [Suspect]
     Dates: end: 20130624

REACTIONS (1)
  - Weight decreased [None]
